FAERS Safety Report 26102516 (Version 1)
Quarter: 2025Q4

REPORT INFORMATION
  Report Type: Spontaneous
  Country: CN (occurrence: CN)
  Receive Date: 20251128
  Receipt Date: 20251128
  Transmission Date: 20260117
  Serious: Yes (Other)
  Sender: JOHNSON AND JOHNSON
  Company Number: CN-JNJFOC-20251166214

PATIENT
  Age: 37 Year
  Sex: Male

DRUGS (2)
  1. DARZALEX [Suspect]
     Active Substance: DARATUMUMAB
     Indication: Post transplant lymphoproliferative disorder
     Route: 041
     Dates: start: 20251111
  2. RITUXIMAB [Concomitant]
     Active Substance: RITUXIMAB
     Indication: Antiviral treatment
     Route: 041
     Dates: start: 20251027, end: 20251117

REACTIONS (3)
  - Supraventricular tachycardia [Recovering/Resolving]
  - Hypokalaemia [Recovering/Resolving]
  - Infusion related reaction [Recovering/Resolving]

NARRATIVE: CASE EVENT DATE: 20251111
